FAERS Safety Report 13276406 (Version 1)
Quarter: 2017Q1

REPORT INFORMATION
  Report Type: Spontaneous
  Country: US (occurrence: US)
  Receive Date: 20170227
  Receipt Date: 20170227
  Transmission Date: 20170428
  Serious: No
  Sender: FDA-Public Use
  Company Number: None

PATIENT
  Age: 50 Year
  Sex: Male

DRUGS (1)
  1. COSENTYX [Suspect]
     Active Substance: SECUKINUMAB
     Dosage: COSENTYX 150MG Q 4 WEEKS SQ
     Route: 058

REACTIONS (1)
  - Contusion [None]

NARRATIVE: CASE EVENT DATE: 20170227
